FAERS Safety Report 24309669 (Version 1)
Quarter: 2024Q3

REPORT INFORMATION
  Report Type: Spontaneous
  Country: RU (occurrence: RU)
  Receive Date: 20240912
  Receipt Date: 20240912
  Transmission Date: 20241016
  Serious: Yes (Hospitalization, Other)
  Sender: RANBAXY
  Company Number: RU-SUN PHARMACEUTICAL INDUSTRIES LTD-2024R1-467080

PATIENT
  Age: 26 Year
  Sex: Male

DRUGS (6)
  1. MOXIFLOXACIN [Suspect]
     Active Substance: MOXIFLOXACIN
     Indication: Conjunctivitis
     Dosage: 0.5 PERCENT, QID
     Route: 047
  2. MOXIFLOXACIN [Suspect]
     Active Substance: MOXIFLOXACIN
     Indication: COVID-19
  3. INDOMETHACIN [Suspect]
     Active Substance: INDOMETHACIN
     Indication: Conjunctivitis
     Dosage: 0.1 PERCENT, TID
     Route: 047
  4. INDOMETHACIN [Suspect]
     Active Substance: INDOMETHACIN
     Indication: COVID-19
  5. HYALURONIC ACID [Suspect]
     Active Substance: HYALURONIC ACID
     Indication: COVID-19
     Dosage: 0.1 PERCENT
     Route: 065
  6. HYALURONIC ACID [Suspect]
     Active Substance: HYALURONIC ACID
     Indication: Conjunctivitis

REACTIONS (2)
  - Dacryocystitis [Recovering/Resolving]
  - Secretion discharge [Recovering/Resolving]
